FAERS Safety Report 17419500 (Version 3)
Quarter: 2020Q2

REPORT INFORMATION
  Report Type: Spontaneous
  Country: ES (occurrence: ES)
  Receive Date: 20200214
  Receipt Date: 20200401
  Transmission Date: 20200713
  Serious: Yes (Life-Threatening, Hospitalization, Disabling)
  Sender: FDA-Public Use
  Company Number: ES-ROCHE-2547874

PATIENT
  Age: 7 Decade
  Sex: Male

DRUGS (5)
  1. BENDAMUSTINE [Suspect]
     Active Substance: BENDAMUSTINE
     Indication: CHRONIC LYMPHOCYTIC LEUKAEMIA
  2. LEFLUNOMIDE. [Suspect]
     Active Substance: LEFLUNOMIDE
     Indication: RHEUMATOID ARTHRITIS
     Route: 065
  3. BENDAMUSTINE [Suspect]
     Active Substance: BENDAMUSTINE
     Indication: CYTOMEGALOVIRUS INFECTION
     Route: 065
     Dates: start: 201705
  4. VALGANCICLOVIR. [Suspect]
     Active Substance: VALGANCICLOVIR
     Indication: CHRONIC LYMPHOCYTIC LEUKAEMIA
  5. VALGANCICLOVIR. [Suspect]
     Active Substance: VALGANCICLOVIR
     Indication: CYTOMEGALOVIRUS INFECTION
     Route: 065
     Dates: start: 201705

REACTIONS (11)
  - Pneumonia [Recovered/Resolved]
  - Pneumonitis [Recovered/Resolved]
  - Viral load increased [Recovered/Resolved]
  - Sepsis [Recovered/Resolved]
  - Cell-mediated cytotoxicity [Recovered/Resolved]
  - Cytomegalovirus syndrome [Recovered/Resolved]
  - Cytomegalovirus infection reactivation [Recovered/Resolved]
  - Colitis [Recovered/Resolved]
  - Hepatotoxicity [Recovered/Resolved]
  - Lymphopenia [Recovered/Resolved]
  - General physical health deterioration [Recovered/Resolved]
